FAERS Safety Report 7950938-3 (Version None)
Quarter: 2011Q4

REPORT INFORMATION
  Report Type: 
  Country: None (occurrence: None)
  Receive Date: 20111201
  Receipt Date: 20111122
  Transmission Date: 20120403
  Serious: No
  Sender: FDA-Public Use
  Company Number: US-BIOGENIDEC-2011BI044690

PATIENT
  Sex: Female

DRUGS (4)
  1. AVONEX [Concomitant]
     Route: 030
  2. TYSABRI [Suspect]
     Indication: MULTIPLE SCLEROSIS
     Route: 042
     Dates: start: 20091228
  3. AVONEX [Concomitant]
     Indication: MULTIPLE SCLEROSIS
     Route: 030
     Dates: start: 19990802
  4. TYSABRI [Suspect]
     Route: 042

REACTIONS (4)
  - CAROTIDYNIA [None]
  - VISUAL IMPAIRMENT [None]
  - VISION BLURRED [None]
  - HEADACHE [None]
